FAERS Safety Report 18786733 (Version 3)
Quarter: 2021Q1

REPORT INFORMATION
  Report Type: Report from Study
  Country: IE (occurrence: IE)
  Receive Date: 20210126
  Receipt Date: 20210209
  Transmission Date: 20210419
  Serious: Yes (Hospitalization)
  Sender: FDA-Public Use
  Company Number: IE-SHIRE-IE202015594

PATIENT
  Age: 58 Year
  Sex: Male

DRUGS (3)
  1. HUMAN IMMUNOGLOBULIN; HYALURONIDASE [Suspect]
     Active Substance: HUMAN IMMUNOGLOBULIN G\HYALURONIDASE RECOMBINANT HUMAN
     Indication: HYPOGAMMAGLOBULINAEMIA
     Dosage: 30 GRAM, EVERY 3 WK
     Route: 058
     Dates: start: 20200505
  2. AMITRIPTYLINE [Concomitant]
     Active Substance: AMITRIPTYLINE
     Indication: PRODUCT USED FOR UNKNOWN INDICATION
  3. PAIN RELIEF NOS [Concomitant]
     Active Substance: CAMPHOR (SYNTHETIC)\LEVOMENTHOL\MENTHYL SALICYLATE OR CAMPHOR (SYNTHETIC)\MENTHOL\MENTHYL SALICYLATE OR MENTHOL\MENTHYL SALICYLATE

REACTIONS (6)
  - COVID-19 [Recovering/Resolving]
  - Product dose omission issue [Unknown]
  - Malaise [Recovering/Resolving]
  - Fatigue [Recovered/Resolved]
  - Incorrect drug administration rate [Unknown]
  - Device infusion issue [Unknown]

NARRATIVE: CASE EVENT DATE: 20210122
